FAERS Safety Report 5191099-6 (Version None)
Quarter: 2006Q4

REPORT INFORMATION
  Report Type: 
  Country: None (occurrence: None)
  Receive Date: 20061226
  Receipt Date: 20061130
  Transmission Date: 20070319
  Serious: Yes (Other)
  Sender: FDA-Public Use
  Company Number: PHEH2006US14754

PATIENT
  Age: 66 Year
  Sex: Female

DRUGS (6)
  1. FEMARA [Suspect]
     Indication: METASTASES TO LIVER
     Dosage: 2.5 MG, QD
     Route: 048
     Dates: start: 20010101
  2. TAXOL [Concomitant]
     Indication: METASTASES TO LIVER
     Dosage: UNK, QW
  3. SINEMET [Concomitant]
     Indication: PARKINSON'S DISEASE
  4. MIRAPEX [Concomitant]
     Indication: PARKINSON'S DISEASE
  5. ATENOLOL [Concomitant]
     Indication: HYPERTENSION
  6. NEXIUM [Concomitant]
     Indication: GASTROOESOPHAGEAL REFLUX DISEASE

REACTIONS (12)
  - BLINDNESS [None]
  - CHROMATOPSIA [None]
  - DEMENTIA [None]
  - HEPATIC ENCEPHALOPATHY [None]
  - HEPATIC FAILURE [None]
  - MACULOPATHY [None]
  - NEUROPATHY [None]
  - RETINAL DEPOSITS [None]
  - RETINAL DISORDER [None]
  - RETINAL PIGMENTATION [None]
  - RETINAL TOXICITY [None]
  - VISUAL ACUITY REDUCED [None]
